FAERS Safety Report 23673902 (Version 1)
Quarter: 2024Q1

REPORT INFORMATION
  Report Type: Report from Study
  Country: US (occurrence: US)
  Receive Date: 20240326
  Receipt Date: 20240326
  Transmission Date: 20240410
  Serious: Yes (Death, Other)
  Sender: FDA-Public Use
  Company Number: US-TAKEDA-SPV1-2009-02239

PATIENT
  Age: 6 Year
  Sex: Male

DRUGS (1)
  1. IDURSULFASE [Suspect]
     Active Substance: IDURSULFASE
     Indication: Mucopolysaccharidosis II
     Dosage: UNK
     Route: 058
     Dates: start: 20090708, end: 20240325

REACTIONS (2)
  - Death [Fatal]
  - H1N1 influenza [Recovered/Resolved]

NARRATIVE: CASE EVENT DATE: 20091001
